FAERS Safety Report 4441751-2 (Version None)
Quarter: 2004Q3

REPORT INFORMATION
  Report Type: 
  Country: None (occurrence: None)
  Receive Date: 20040903
  Receipt Date: 20040823
  Transmission Date: 20050211
  Serious: Yes (Death)
  Sender: FDA-Public Use
  Company Number: 2004S1001221

PATIENT
  Age: 92 Year
  Sex: Male

DRUGS (11)
  1. CLOZAPINE [Suspect]
     Dosage: 12.5MG QD, ORAL
     Route: 048
     Dates: start: 20040317, end: 20040411
  2. ACETAMINOPHEN [Concomitant]
  3. MORPHINE SULFATE [Concomitant]
  4. DIGOXIN [Concomitant]
  5. ALBUTEROL [Concomitant]
  6. FUROSEMIDE [Concomitant]
  7. HYDROXYZINE [Concomitant]
  8. NYSTATIN [Concomitant]
  9. ZOLPIDEM TARTRATE [Concomitant]
  10. LORAZEPAM [Concomitant]
  11. SCOPALAMINE TRANSDERMAL [Concomitant]

REACTIONS (1)
  - DEATH [None]
